FAERS Safety Report 6444762-0 (Version None)
Quarter: 2009Q4

REPORT INFORMATION
  Report Type: 
  Country: None (occurrence: None)
  Receive Date: 20091118
  Receipt Date: 20091111
  Transmission Date: 20100525
  Serious: Yes (Life-Threatening, Other)
  Sender: FDA-Public Use
  Company Number: B0597997A

PATIENT
  Sex: Female

DRUGS (2)
  1. RELENZA [Suspect]
     Dosage: 10MG TWICE PER DAY
     Route: 055
     Dates: start: 20091010, end: 20091010
  2. FLOMOX [Concomitant]
     Route: 048
     Dates: start: 20091009, end: 20091013

REACTIONS (2)
  - ANAPHYLACTIC REACTION [None]
  - DYSPNOEA [None]
